FAERS Safety Report 4520182-0 (Version None)
Quarter: 2004Q4

REPORT INFORMATION
  Report Type: 
  Country: None (occurrence: None)
  Receive Date: 20041201
  Receipt Date: 20041201
  Transmission Date: 20050328
  Serious: Yes (Other)
  Sender: FDA-Public Use
  Company Number: None

PATIENT
  Sex: Male
  Weight: 104.3273 kg

DRUGS (1)
  1. SULFAMETH 800/TMP 160 MG [Suspect]
     Dosage: ONE PO BID X 14 DAYS
     Route: 048

REACTIONS (2)
  - DYSPNOEA [None]
  - PRURITUS [None]
